FAERS Safety Report 12560687 (Version 3)
Quarter: 2016Q3

REPORT INFORMATION
  Report Type: Spontaneous
  Country: US (occurrence: US)
  Receive Date: 20160715
  Receipt Date: 20160824
  Transmission Date: 20161109
  Serious: Yes (Hospitalization)
  Sender: FDA-Public Use
  Company Number: US-HORIZON-ACT-0169-2016

PATIENT
  Age: 1 Year
  Sex: Male

DRUGS (3)
  1. BACTRIM [Concomitant]
     Active Substance: SULFAMETHOXAZOLE\TRIMETHOPRIM
  2. HYDROCORTISONE. [Concomitant]
     Active Substance: HYDROCORTISONE
  3. ACTIMMUNE [Suspect]
     Active Substance: INTERFERON GAMMA-1B
     Indication: CHRONIC GRANULOMATOUS DISEASE
     Dosage: PRESCRIBED 8 ?G TIW, LAST DOSE 5 ?G TIW
     Dates: start: 20151124, end: 20160624

REACTIONS (1)
  - Urinary tract infection [Unknown]

NARRATIVE: CASE EVENT DATE: 20160623
